FAERS Safety Report 15015583 (Version 2)
Quarter: 2018Q3

REPORT INFORMATION
  Report Type: Report from Study
  Country: NL (occurrence: NL)
  Receive Date: 20180615
  Receipt Date: 20180706
  Transmission Date: 20181010
  Serious: Yes (Death, Hospitalization, Other)
  Sender: FDA-Public Use
  Company Number: NL-AMGEN-NLDSL2018080537

PATIENT
  Age: 88 Year
  Sex: Female
  Weight: 80 kg

DRUGS (2)
  1. ARANESP [Suspect]
     Active Substance: DARBEPOETIN ALFA
     Indication: MYELODYSPLASTIC SYNDROME
     Dosage: 150 MCG (500 MCG/ML 0.3ML), Q2WK
     Route: 058
  2. ARANESP [Suspect]
     Active Substance: DARBEPOETIN ALFA
     Dosage: 150 MCG (500 MCG/ML 0.3ML), QWK
     Route: 058

REACTIONS (2)
  - Sepsis [Fatal]
  - Cellulitis [Fatal]

NARRATIVE: CASE EVENT DATE: 20180601
